FAERS Safety Report 8515690-1 (Version None)
Quarter: 2012Q3

REPORT INFORMATION
  Report Type: 
  Country: None (occurrence: None)
  Receive Date: 20120717
  Receipt Date: 20120713
  Transmission Date: 20120928
  Serious: Yes (Other)
  Sender: FDA-Public Use
  Company Number: PHHY2012AR060995

PATIENT
  Sex: Female

DRUGS (1)
  1. DIOVAN [Suspect]
     Indication: BLOOD PRESSURE
     Dosage: UNK UKN, UNK

REACTIONS (3)
  - NERVE ROOT COMPRESSION [None]
  - PAIN IN EXTREMITY [None]
  - GAIT DISTURBANCE [None]
